FAERS Safety Report 24881283 (Version 2)
Quarter: 2025Q1

REPORT INFORMATION
  Report Type: Spontaneous
  Country: US (occurrence: US)
  Receive Date: 20250124
  Receipt Date: 20250317
  Transmission Date: 20250408
  Serious: No
  Sender: ROCHE
  Company Number: US-ROCHE-10000187560

PATIENT
  Age: 29 Year
  Sex: Female

DRUGS (2)
  1. XOLAIR PFS [Suspect]
     Active Substance: OMALIZUMAB
     Indication: Idiopathic urticaria
     Dosage: XOLAIR PFS 75MG/0.5ML?EVERY 2 WEEKS WITH 300MG SYRINGE, TOTAL DOSE 375MG
     Route: 058
  2. XOLAIR PFS [Suspect]
     Active Substance: OMALIZUMAB
     Route: 058

REACTIONS (3)
  - Off label use [Unknown]
  - Off label use [Unknown]
  - Idiopathic urticaria [Unknown]
